FAERS Safety Report 17197793 (Version 1)
Quarter: 2019Q4

REPORT INFORMATION
  Report Type: Report from Study
  Country: None (occurrence: CO)
  Receive Date: 20191224
  Receipt Date: 20191224
  Transmission Date: 20200122
  Serious: Yes (Hospitalization, Other)
  Sender: FDA-Public Use
  Company Number: CO-ABBVIE-19K-036-2996754-00

PATIENT
  Age: 0 Year
  Sex: Female

DRUGS (1)
  1. SYNAGIS [Suspect]
     Active Substance: PALIVIZUMAB
     Indication: PREMATURE BABY
     Route: 030
     Dates: start: 20190822, end: 20190919

REACTIONS (6)
  - Urinary tract infection [Recovering/Resolving]
  - Central nervous system infection [Recovering/Resolving]
  - Respiratory arrest [Recovering/Resolving]
  - Pneumothorax [Recovering/Resolving]
  - Lung disorder [Recovering/Resolving]
  - Myocardial infarction [Recovering/Resolving]

NARRATIVE: CASE EVENT DATE: 2019
